FAERS Safety Report 8914513 (Version 4)
Quarter: 2015Q1

REPORT INFORMATION
  Report Type: Report from Study
  Country: GB (occurrence: GB)
  Receive Date: 20121119
  Receipt Date: 20150213
  Transmission Date: 20150721
  Serious: Yes (Life-Threatening)
  Sender: FDA-Public Use
  Company Number: GB-JNJFOC-20121104497

PATIENT
  Age: 69 Year
  Sex: Male
  Weight: 104 kg

DRUGS (4)
  1. INSULIN INSULTARD [Concomitant]
     Route: 058
     Dates: start: 20120726
  2. NOVOPEN INSULIN [Concomitant]
     Route: 058
     Dates: start: 20120726
  3. ABIRATERONE ACETATE [Suspect]
     Active Substance: ABIRATERONE ACETATE
     Indication: PROSTATE CANCER METASTATIC
     Route: 048
     Dates: start: 20120820, end: 20120917
  4. ZOLADEX [Suspect]
     Active Substance: GOSERELIN ACETATE
     Indication: PROSTATE CANCER METASTATIC
     Route: 058
     Dates: start: 20120608, end: 20120831

REACTIONS (1)
  - Pulmonary oedema [Recovered/Resolved]

NARRATIVE: CASE EVENT DATE: 20121015
